APPROVED DRUG PRODUCT: ADDERALL XR 10
Active Ingredient: AMPHETAMINE ASPARTATE; AMPHETAMINE SULFATE; DEXTROAMPHETAMINE SACCHARATE; DEXTROAMPHETAMINE SULFATE
Strength: 2.5MG;2.5MG;2.5MG;2.5MG
Dosage Form/Route: CAPSULE, EXTENDED RELEASE;ORAL
Application: N021303 | Product #001 | TE Code: AB1
Applicant: TAKEDA PHARMACEUTICALS USA INC
Approved: Oct 11, 2001 | RLD: Yes | RS: No | Type: RX